FAERS Safety Report 8373781-2 (Version None)
Quarter: 2012Q2

REPORT INFORMATION
  Report Type: 
  Country: None (occurrence: None)
  Receive Date: 20120521
  Receipt Date: 20120515
  Transmission Date: 20120825
  Serious: Yes (Hospitalization)
  Sender: FDA-Public Use
  Company Number: PHHY2012MX026006

PATIENT
  Sex: Male

DRUGS (5)
  1. ONBREZ [Suspect]
     Indication: CHRONIC OBSTRUCTIVE PULMONARY DISEASE
     Dosage: 1 DF, QD
     Dates: start: 20120120, end: 20120303
  2. SINTROM [Concomitant]
     Dosage: 1 DF, QD
     Dates: start: 20120303
  3. SIMBASTATINA [Concomitant]
     Indication: BLOOD CHOLESTEROL
     Dosage: 1 DF, QD
     Dates: start: 20120303
  4. ASPITAC [Concomitant]
     Dosage: 1 DF, QD
     Dates: start: 20120303
  5. SPIRONOLACTONE [Concomitant]
     Dosage: 1 DF, QD

REACTIONS (1)
  - MYOCARDIAL INFARCTION [None]
